FAERS Safety Report 8120831 (Version 4)
Quarter: 2012Q4

REPORT INFORMATION
  Report Type: 
  Country: PT (occurrence: PT)
  Receive Date: 20110906
  Receipt Date: 20121106
  Transmission Date: 20130627
  Serious: Yes (Hospitalization)
  Sender: FDA-Public Use
  Company Number: PT-JNJFOC-20110811015

PATIENT
  Age: 0 Year
  Sex: Male
  Weight: 3.65 kg

DRUGS (5)
  1. DARUNAVIR [Suspect]
     Indication: FOETAL EXPOSURE DURING PREGNANCY
     Route: 064
     Dates: start: 20110214
  2. RITONAVIR [Suspect]
     Indication: FOETAL EXPOSURE DURING PREGNANCY
     Route: 064
     Dates: start: 20110214
  3. ZIDOVUDINE [Concomitant]
     Indication: FOETAL EXPOSURE DURING PREGNANCY
     Route: 064
     Dates: start: 20110725, end: 20110725
  4. RALTEGRAVIR [Concomitant]
     Indication: FOETAL EXPOSURE DURING PREGNANCY
     Route: 064
     Dates: start: 20110214
  5. TRUVADA [Concomitant]
     Indication: FOETAL EXPOSURE DURING PREGNANCY
     Route: 064
     Dates: start: 20110214

REACTIONS (2)
  - Respiratory distress [Recovered/Resolved]
  - Pneumonia [Recovered/Resolved]
